FAERS Safety Report 18456562 (Version 1)
Quarter: 2020Q4

REPORT INFORMATION
  Report Type: Spontaneous
  Country: FR (occurrence: FR)
  Receive Date: 20201103
  Receipt Date: 20201103
  Transmission Date: 20210114
  Serious: Yes (Hospitalization)
  Sender: FDA-Public Use
  Company Number: FR-AXELLIA-003471

PATIENT
  Age: 73 Year
  Sex: Female
  Weight: 103 kg

DRUGS (8)
  1. OXYCONTIN [Concomitant]
     Active Substance: OXYCODONE HYDROCHLORIDE
     Dosage: 10 MG PROLONGED-RELEASE FILM-COATED TABLETS
     Dates: start: 20200907, end: 20200921
  2. LANSOPRAZOLE. [Concomitant]
     Active Substance: LANSOPRAZOLE
     Indication: PROPHYLAXIS AGAINST GASTROINTESTINAL ULCER
     Route: 048
     Dates: start: 20200907, end: 20201002
  3. SERTRALINE [Concomitant]
     Active Substance: SERTRALINE HYDROCHLORIDE
  4. RIFAMPICIN [Suspect]
     Active Substance: RIFAMPIN
     Indication: INFECTION
     Route: 048
     Dates: start: 20200827, end: 20200921
  5. OXYNORMORO [Concomitant]
     Active Substance: OXYCODONE HYDROCHLORIDE
     Dosage: 5 MG
     Dates: start: 20200907, end: 20200921
  6. DAPTOMYCIN. [Suspect]
     Active Substance: DAPTOMYCIN
     Indication: INFECTION
     Route: 042
     Dates: start: 20200819, end: 20200819
  7. PIPERACILLIN BASE [Suspect]
     Active Substance: PIPERACILLIN
     Indication: INFECTION
     Route: 042
     Dates: start: 20200819, end: 20200921
  8. TAZOBACTAM/TAZOBACTAM SODIUM [Suspect]
     Active Substance: TAZOBACTAM SODIUM
     Indication: INFECTION
     Route: 042
     Dates: start: 20200819, end: 20200921

REACTIONS (4)
  - Eosinophilia [Not Recovered/Not Resolved]
  - Liver injury [Not Recovered/Not Resolved]
  - Pruritus [Recovering/Resolving]
  - Dermatitis exfoliative generalised [Recovered/Resolved]

NARRATIVE: CASE EVENT DATE: 20200915
